FAERS Safety Report 24929064 (Version 1)
Quarter: 2025Q1

REPORT INFORMATION
  Report Type: Spontaneous
  Country: BR (occurrence: BR)
  Receive Date: 20250205
  Receipt Date: 20250205
  Transmission Date: 20250409
  Serious: Yes (Other)
  Sender: ABBVIE
  Company Number: BR-ABBVIE-6120416

PATIENT
  Age: 67 Year
  Sex: Male
  Weight: 128 kg

DRUGS (2)
  1. OFLOXACIN [Suspect]
     Active Substance: OFLOXACIN
     Indication: Injury corneal
     Dosage: OFLOX - VIAL W/ 5 ML ?1 DROP IN LEFT EYE
     Route: 065
     Dates: start: 20250202, end: 20250203
  2. Lunah [Concomitant]
     Indication: Product used for unknown indication

REACTIONS (1)
  - Cerebrovascular accident [Recovering/Resolving]

NARRATIVE: CASE EVENT DATE: 20250201
